FAERS Safety Report 4560129-4 (Version None)
Quarter: 2005Q1

REPORT INFORMATION
  Report Type: 
  Country: None (occurrence: None)
  Receive Date: 20050119
  Receipt Date: 20050104
  Transmission Date: 20050727
  Serious: Yes (Hospitalization)
  Sender: FDA-Public Use
  Company Number: 2005-FF-00005FF

PATIENT
  Age: 1 Month
  Sex: Male

DRUGS (3)
  1. VIRAMUNE [Suspect]
     Indication: HIV INFECTION
     Dosage: IU
     Route: 064
     Dates: start: 20030924, end: 20040317
  2. VIRAMUNE [Suspect]
     Indication: MATERNAL CONDITION AFFECTING FOETUS
     Dosage: IU
     Route: 064
     Dates: start: 20030924, end: 20040317
  3. VIRACEPT [Concomitant]
     Route: 064

REACTIONS (6)
  - BLOOD CREATINE PHOSPHOKINASE INCREASED [None]
  - DRUG EXPOSURE DURING PREGNANCY [None]
  - HYPERLACTACIDAEMIA [None]
  - MITOCHONDRIAL CYTOPATHY [None]
  - NEUTROPENIA [None]
  - PANCREATITIS [None]
